FAERS Safety Report 25430724 (Version 1)
Quarter: 2025Q2

REPORT INFORMATION
  Report Type: Spontaneous
  Country: GB (occurrence: GB)
  Receive Date: 20250612
  Receipt Date: 20250612
  Transmission Date: 20250717
  Serious: Yes (Other)
  Sender: MERCK SHARP & DOHME LLC
  Company Number: GB-009507513-2293078

PATIENT
  Age: 55 Year
  Sex: Male

DRUGS (4)
  1. CASPOFUNGIN [Suspect]
     Active Substance: CASPOFUNGIN
     Indication: Candida infection
  2. DAPTOMYCIN [Concomitant]
     Active Substance: DAPTOMYCIN
     Indication: Cutibacterium acnes infection
  3. RIFAMPIN [Concomitant]
     Active Substance: RIFAMPIN
     Indication: Cutibacterium acnes infection
  4. WARFARIN [Suspect]
     Active Substance: WARFARIN

REACTIONS (4)
  - Haemorrhagic transformation stroke [Recovered/Resolved]
  - Intracranial haematoma [Recovered/Resolved]
  - International normalised ratio increased [Recovered/Resolved]
  - Drug interaction [Recovered/Resolved]
